FAERS Safety Report 4864708-6 (Version None)
Quarter: 2005Q4

REPORT INFORMATION
  Report Type: 
  Country: None (occurrence: None)
  Receive Date: 20051222
  Receipt Date: 20040720
  Transmission Date: 20060501
  Serious: Yes (Death, Life-Threatening, Other)
  Sender: FDA-Public Use
  Company Number: DE-MERCK-0407DEU00163

PATIENT
  Age: 14 Year
  Sex: Female
  Weight: 44 kg

DRUGS (3)
  1. VIOXX [Suspect]
     Indication: BARTTER'S SYNDROME
     Route: 048
     Dates: start: 20030104, end: 20040601
  2. MAGNESIUM ASPARTATE [Concomitant]
     Route: 048
     Dates: start: 20021101
  3. POTASSIUM CHLORIDE [Concomitant]
     Indication: HYPOKALAEMIA
     Route: 048
     Dates: start: 20021101

REACTIONS (15)
  - ASPIRATION [None]
  - CONVULSION [None]
  - ELECTROCARDIOGRAM QT PROLONGED [None]
  - ELECTROLYTE IMBALANCE [None]
  - EMPHYSEMA [None]
  - HYPOXIA [None]
  - INJURY ASPHYXIATION [None]
  - LOSS OF CONSCIOUSNESS [None]
  - NASOPHARYNGITIS [None]
  - PRESCRIBED OVERDOSE [None]
  - PULMONARY HAEMORRHAGE [None]
  - REGURGITATION OF FOOD [None]
  - SHOCK [None]
  - SINUS TACHYCARDIA [None]
  - SUPRAVENTRICULAR EXTRASYSTOLES [None]
